FAERS Safety Report 22746101 (Version 4)
Quarter: 2023Q4

REPORT INFORMATION
  Report Type: Spontaneous
  Country: US (occurrence: US)
  Receive Date: 20230725
  Receipt Date: 20231206
  Transmission Date: 20240109
  Serious: No
  Sender: FDA-Public Use
  Company Number: US-002147023-NVSC2023US163300

PATIENT
  Sex: Female

DRUGS (1)
  1. CIPRO HC [Suspect]
     Active Substance: CIPROFLOXACIN HYDROCHLORIDE\HYDROCORTISONE
     Indication: Product used for unknown indication
     Dosage: UNK
     Route: 047

REACTIONS (10)
  - Illness [Unknown]
  - Product physical consistency issue [Unknown]
  - Incorrect route of product administration [Unknown]
  - Product container issue [Unknown]
  - Pain [Unknown]
  - Emotional distress [Unknown]
  - Ear disorder [Unknown]
  - Foot fracture [Unknown]
  - Product dose omission issue [Unknown]
  - Product availability issue [Unknown]
